FAERS Safety Report 21466777 (Version 1)
Quarter: 2022Q4

REPORT INFORMATION
  Report Type: Report from Study
  Country: JP (occurrence: JP)
  Receive Date: 20221017
  Receipt Date: 20221017
  Transmission Date: 20230113
  Serious: Yes (Hospitalization)
  Sender: FDA-Public Use
  Company Number: JP-DSJP-DSJ-2022-126401

PATIENT
  Age: 78 Year
  Sex: Female
  Weight: 50 kg

DRUGS (9)
  1. ENHERTU [Suspect]
     Active Substance: FAM-TRASTUZUMAB DERUXTECAN-NXKI
     Indication: Gastric cancer recurrent
     Dosage: 321.28 MG, ONCE EVERY 3 WK
     Route: 041
     Dates: start: 20220714, end: 20220714
  2. ENHERTU [Suspect]
     Active Substance: FAM-TRASTUZUMAB DERUXTECAN-NXKI
     Dosage: UNK UNK, ONCE EVERY 3 WK
     Route: 041
     Dates: start: 20220810, end: 20220810
  3. ALOXI [Concomitant]
     Active Substance: PALONOSETRON HYDROCHLORIDE
     Dosage: 0.75MG/DAY
     Route: 041
     Dates: start: 20220714
  4. DECADRON (DEXAMETHASONE SODIUM PHOSPHATE) [Concomitant]
     Active Substance: DEXAMETHASONE SODIUM PHOSPHATE
     Dosage: 9.9MG/DAY
     Route: 041
     Dates: start: 20220714
  5. EMEND [Concomitant]
     Active Substance: APREPITANT
     Dosage: 125MG/DAY
     Route: 048
     Dates: start: 20220714
  6. EMEND [Concomitant]
     Active Substance: APREPITANT
     Dosage: 80MG/DAY
     Route: 048
     Dates: start: 20220715, end: 20220716
  7. DECADRON [Concomitant]
     Active Substance: DEXAMETHASONE
     Dosage: 8.0MG/DAY
     Route: 048
     Dates: start: 20220715, end: 20220717
  8. LOXOPROFEN SODIUM [Concomitant]
     Active Substance: LOXOPROFEN SODIUM
     Dosage: UNK
     Route: 065
     Dates: end: 20220727
  9. LAFUTIDINE [Concomitant]
     Active Substance: LAFUTIDINE
     Dosage: UNK
     Route: 065

REACTIONS (4)
  - Febrile neutropenia [Recovered/Resolved]
  - Anaemia [Recovered/Resolved]
  - Platelet count decreased [Recovered/Resolved]
  - Acute kidney injury [Recovered/Resolved]

NARRATIVE: CASE EVENT DATE: 20220725
